FAERS Safety Report 8923352 (Version 1)
Quarter: 2012Q4

REPORT INFORMATION
  Report Type: 
  Country: JP (occurrence: JP)
  Receive Date: 20121124
  Receipt Date: 20121124
  Transmission Date: 20130627
  Serious: Yes (Other)
  Sender: FDA-Public Use
  Company Number: PHHY2012JP106212

PATIENT

DRUGS (1)
  1. DIOVAN [Suspect]
     Dosage: 40 mg, daily
     Route: 048

REACTIONS (1)
  - Interstitial lung disease [Unknown]
